FAERS Safety Report 10077418 (Version 2)
Quarter: 2014Q2

REPORT INFORMATION
  Report Type: Spontaneous
  Country: FR (occurrence: FR)
  Receive Date: 20140414
  Receipt Date: 20140414
  Transmission Date: 20141212
  Serious: Yes (Hospitalization)
  Sender: FDA-Public Use
  Company Number: PHRM2008FR00838

PATIENT
  Age: 64 Year
  Sex: Male

DRUGS (6)
  1. VOLTARENE LP [Suspect]
     Indication: SCIATICA
     Dosage: 150 MG, QD
     Route: 048
     Dates: start: 20071127, end: 20080110
  2. PARACETAMOL+CODEINE [Suspect]
     Dosage: 3 DF, UNK
     Route: 048
     Dates: start: 20080113, end: 20080113
  3. BI-PROFENID [Suspect]
     Indication: SCIATICA
     Dosage: 300 MG, QD
     Route: 048
     Dates: start: 20080111, end: 20080113
  4. OMEPRAZOLE SANDOZ//OMEPRAZOLE [Concomitant]
     Dosage: 20 MG, QD
     Route: 048
     Dates: start: 20071127
  5. TEMESTA [Concomitant]
     Dosage: 1 MG, QD
     Route: 048
  6. AMLODIPINE SANDOZ//AMLODIPINE BESILATE [Concomitant]
     Dosage: 5 MG, QD
     Route: 048

REACTIONS (4)
  - Gastric ulcer haemorrhage [Recovered/Resolved]
  - Haematemesis [Recovered/Resolved]
  - Melaena [Recovered/Resolved]
  - Haemorrhagic anaemia [Recovered/Resolved]
